FAERS Safety Report 8259473-9 (Version None)
Quarter: 2012Q2

REPORT INFORMATION
  Report Type: 
  Country: None (occurrence: None)
  Receive Date: 20120404
  Receipt Date: 20120329
  Transmission Date: 20120825
  Serious: Yes (Hospitalization)
  Sender: FDA-Public Use
  Company Number: US-BRISTOL-MYERS SQUIBB COMPANY-15389703

PATIENT
  Age: 51 Year
  Sex: Male

DRUGS (5)
  1. FENTANYL [Concomitant]
     Dates: start: 20101104
  2. DILAUDID [Concomitant]
     Dates: start: 20101007
  3. CETUXIMAB [Suspect]
     Indication: NEOPLASM
     Route: 042
     Dates: start: 20101115, end: 20101101
  4. LYRICA [Concomitant]
     Dates: start: 20100710
  5. BMS754807 [Suspect]
     Indication: NEOPLASM
     Dates: start: 20101111, end: 20101115

REACTIONS (4)
  - GRAND MAL CONVULSION [None]
  - GROIN PAIN [None]
  - CYTOKINE RELEASE SYNDROME [None]
  - BLOOD PRESSURE DECREASED [None]
